FAERS Safety Report 9431434 (Version 1)
Quarter: 2013Q3

REPORT INFORMATION
  Report Type: Spontaneous
  Country: JP (occurrence: JP)
  Receive Date: 20130730
  Receipt Date: 20130730
  Transmission Date: 20140515
  Serious: Yes (Death)
  Sender: FDA-Public Use
  Company Number: JP-COVIDIEN/TYCO HEALTHCARE/MALLINCKRODT-T201303854

PATIENT
  Age: 77 Year
  Sex: Female
  Weight: 37.2 kg

DRUGS (6)
  1. METHADONE [Suspect]
     Indication: CANCER PAIN
     Dosage: 10 MG, UNK
     Route: 048
     Dates: start: 20130528, end: 20130609
  2. LANSOPRAZOLE [Concomitant]
     Dosage: 15 MG, UNK
     Route: 048
     Dates: end: 20130611
  3. LOXOPROFEN SODIUM [Concomitant]
     Dosage: 180 MG, UNK
     Route: 048
     Dates: end: 20130611
  4. REBAMIPIDE [Concomitant]
     Dosage: 300 MG, UNK
     Route: 048
     Dates: end: 20130611
  5. WYPAX [Concomitant]
     Dosage: 1 MG, UNK
     Route: 048
     Dates: end: 20130611
  6. VASOLAN                            /00014302/ [Concomitant]
     Dosage: 120 MG, UNK
     Route: 048
     Dates: end: 20130611

REACTIONS (1)
  - Malignant palate neoplasm [Fatal]
